FAERS Safety Report 4277305-0 (Version None)
Quarter: 2004Q1

REPORT INFORMATION
  Report Type: 
  Country: None (occurrence: None)
  Receive Date: 20040120
  Receipt Date: 20040112
  Transmission Date: 20041129
  Serious: Yes (Hospitalization)
  Sender: FDA-Public Use
  Company Number: 2004-01-0364

PATIENT
  Age: 51 Year
  Sex: Male
  Weight: 66 kg

DRUGS (4)
  1. REBETOL [Suspect]
     Indication: HEPATITIS C
     Dosage: 800 MG QD ORAL
     Route: 048
     Dates: start: 20021105, end: 20030422
  2. VIRAFERONPEG [Suspect]
     Indication: HEPATITIS C
     Dosage: 1.5 ?G/KG QW SUBCUTANEOUS
     Route: 058
     Dates: start: 20021105, end: 20030422
  3. ZYRTEC [Suspect]
     Indication: PRURITUS
     Dosage: 10 MG QD ORAL
     Route: 048
     Dates: start: 20021115
  4. BRICANYL [Suspect]
     Dosage: PRN ORAL
     Route: 048
     Dates: start: 20021105

REACTIONS (3)
  - ALOPECIA [None]
  - DERMATITIS BULLOUS [None]
  - PEMPHIGUS [None]
